FAERS Safety Report 22957081 (Version 2)
Quarter: 2023Q4

REPORT INFORMATION
  Report Type: Spontaneous
  Country: US (occurrence: US)
  Receive Date: 20230919
  Receipt Date: 20231228
  Transmission Date: 20240110
  Serious: Yes (Other)
  Sender: FDA-Public Use
  Company Number: US-SEPTODONT-2023018001

PATIENT
  Age: 56 Year
  Sex: Female

DRUGS (2)
  1. SEPTOCAINE [Suspect]
     Active Substance: ARTICAINE HYDROCHLORIDE\EPINEPHRINE BITARTRATE
     Indication: Dental local anaesthesia
     Route: 004
     Dates: start: 20230822, end: 20230822
  2. EPINEPHRINE BITARTRATE\LIDOCAINE HYDROCHLORIDE [Suspect]
     Active Substance: EPINEPHRINE BITARTRATE\LIDOCAINE HYDROCHLORIDE
     Indication: Dental local anaesthesia
     Route: 004
     Dates: start: 20230822, end: 20230822

REACTIONS (4)
  - Facial paralysis [Unknown]
  - Trismus [Not Recovered/Not Resolved]
  - Speech disorder [Unknown]
  - Tinnitus [Unknown]

NARRATIVE: CASE EVENT DATE: 20230822
